FAERS Safety Report 4467782-4 (Version None)
Quarter: 2004Q4

REPORT INFORMATION
  Report Type: 
  Country: None (occurrence: None)
  Receive Date: 20041004
  Receipt Date: 20040920
  Transmission Date: 20050328
  Serious: Yes (Hospitalization)
  Sender: FDA-Public Use
  Company Number: S04-GER-04874-01

PATIENT
  Sex: Female

DRUGS (3)
  1. CITALOPRAM HYDROBROMIDE [Suspect]
     Dosage: 10 TABLET PO
     Route: 048
     Dates: start: 20040918, end: 20040918
  2. CITALOPRAM HYDROBROMIDE [Suspect]
  3. OLANZAPINE [Suspect]

REACTIONS (9)
  - CEREBROVASCULAR ACCIDENT [None]
  - COMA [None]
  - DYSKINESIA [None]
  - HYPOTONIA [None]
  - OVERDOSE [None]
  - PUPILLARY REFLEX IMPAIRED [None]
  - SUICIDE ATTEMPT [None]
  - TREATMENT NONCOMPLIANCE [None]
  - UNEVALUABLE EVENT [None]
